FAERS Safety Report 8911003 (Version 1)
Quarter: 2012Q4

REPORT INFORMATION
  Report Type: 
  Country: US (occurrence: US)
  Receive Date: 20121116
  Receipt Date: 20121116
  Transmission Date: 20130627
  Serious: No
  Sender: FDA-Public Use
  Company Number: US-BAYER-2012-119788

PATIENT
  Age: 46 Year
  Sex: Female
  Weight: 62.59 kg

DRUGS (3)
  1. ALEVE CAPLET/TABLET,MIDOL EXTENDED RELIEF CAPLET [Suspect]
     Indication: ARTHRITIS
     Dosage: 2 DF, QD
     Route: 048
     Dates: start: 1999
  2. BACLOFEN [Concomitant]
  3. OXYCONTIN [Concomitant]

REACTIONS (1)
  - Incorrect drug administration duration [None]
